FAERS Safety Report 11156932 (Version 1)
Quarter: 2015Q2

REPORT INFORMATION
  Report Type: Spontaneous
  Country: GB (occurrence: GB)
  Receive Date: 20150602
  Receipt Date: 20150602
  Transmission Date: 20150821
  Serious: Yes (Life-Threatening, Disabling)
  Sender: FDA-Public Use
  Company Number: PHHY2015GB062254

PATIENT
  Age: 21 Year
  Sex: Male
  Weight: 70 kg

DRUGS (2)
  1. ARIPIPRAZOLE. [Suspect]
     Active Substance: ARIPIPRAZOLE
     Indication: PRODUCT USED FOR UNKNOWN INDICATION
     Dosage: 20 MG, UNK (2.5 MG TO 20 MG)
     Route: 048
     Dates: start: 20150401, end: 20150430
  2. OLANZAPINE. [Suspect]
     Active Substance: OLANZAPINE
     Indication: PRODUCT USED FOR UNKNOWN INDICATION
     Dosage: 15 MG, UNK (2.5 MG TO 15 MG)
     Route: 048
     Dates: start: 20141201, end: 20141231

REACTIONS (1)
  - Feeling abnormal [Not Recovered/Not Resolved]

NARRATIVE: CASE EVENT DATE: 20141201
